FAERS Safety Report 20008329 (Version 1)
Quarter: 2021Q4

REPORT INFORMATION
  Report Type: Spontaneous
  Country: US (occurrence: US)
  Receive Date: 20211029
  Receipt Date: 20211029
  Transmission Date: 20220303
  Serious: No
  Sender: FDA-Public Use
  Company Number: US-ULTRAGENYX PHARMACEUTICAL INC.-US-UGNX-20-00254

PATIENT
  Age: 29 Year
  Sex: Male
  Weight: 87 kg

DRUGS (9)
  1. DOJOLVI [Suspect]
     Active Substance: TRIHEPTANOIN
     Indication: Carnitine palmitoyltransferase deficiency
     Route: 048
     Dates: start: 20200925
  2. DOJOLVI [Suspect]
     Active Substance: TRIHEPTANOIN
     Route: 048
     Dates: start: 20201126
  3. DOJOLVI [Suspect]
     Active Substance: TRIHEPTANOIN
     Route: 048
     Dates: start: 20201127
  4. DOJOLVI [Suspect]
     Active Substance: TRIHEPTANOIN
     Route: 048
     Dates: start: 20201202
  5. DOJOLVI [Suspect]
     Active Substance: TRIHEPTANOIN
     Route: 048
     Dates: start: 202010
  6. DOJOLVI [Suspect]
     Active Substance: TRIHEPTANOIN
     Route: 048
     Dates: start: 202010
  7. DOJOLVI [Suspect]
     Active Substance: TRIHEPTANOIN
     Route: 048
  8. DOJOLVI [Suspect]
     Active Substance: TRIHEPTANOIN
  9. EFFEXOR [Concomitant]
     Active Substance: VENLAFAXINE HYDROCHLORIDE
     Indication: Product used for unknown indication

REACTIONS (3)
  - Blood triglycerides increased [Unknown]
  - Abdominal discomfort [Recovered/Resolved]
  - Nausea [Not Recovered/Not Resolved]

NARRATIVE: CASE EVENT DATE: 20201001
